FAERS Safety Report 5901717-X (Version None)
Quarter: 2008Q3

REPORT INFORMATION
  Report Type: 
  Country: None (occurrence: None)
  Receive Date: 20080929
  Receipt Date: 20080916
  Transmission Date: 20090109
  Serious: Yes (Hospitalization)
  Sender: FDA-Public Use
  Company Number: B0537313A

PATIENT
  Age: 75 Year
  Sex: Female

DRUGS (6)
  1. AUGMENTIN '125' [Suspect]
     Dosage: 1G SINGLE DOSE
     Route: 042
     Dates: start: 20080816, end: 20080816
  2. CETUXIMAB [Suspect]
     Dosage: 390MG PER DAY
     Route: 042
     Dates: end: 20080811
  3. CAMPTOSAR [Suspect]
     Dosage: 280MG PER DAY
     Route: 058
     Dates: end: 20080811
  4. LOVENOX [Concomitant]
     Indication: DRUG USE FOR UNKNOWN INDICATION
     Route: 058
     Dates: start: 20080817
  5. ROCEPHIN [Concomitant]
     Indication: DRUG USE FOR UNKNOWN INDICATION
     Route: 065
     Dates: start: 20080817, end: 20080825
  6. OFLOCET [Concomitant]
     Indication: DRUG USE FOR UNKNOWN INDICATION
     Route: 042
     Dates: start: 20080817, end: 20080825

REACTIONS (6)
  - ERYTHEMA [None]
  - INFLAMMATION [None]
  - PRURITUS [None]
  - RASH [None]
  - RASH MACULAR [None]
  - TOXIC SKIN ERUPTION [None]
